FAERS Safety Report 19254096 (Version 1)
Quarter: 2021Q2

REPORT INFORMATION
  Report Type: Spontaneous
  Country: JP (occurrence: JP)
  Receive Date: 20210513
  Receipt Date: 20210513
  Transmission Date: 20210717
  Serious: Yes (Hospitalization)
  Sender: FDA-Public Use
  Company Number: JP-ELI_LILLY_AND_COMPANY-JP202105002317

PATIENT

DRUGS (1)
  1. ALIMTA [Suspect]
     Active Substance: PEMETREXED DISODIUM
     Indication: THYMOMA MALIGNANT
     Route: 041

REACTIONS (2)
  - Myasthenia gravis crisis [Unknown]
  - Off label use [Unknown]

NARRATIVE: CASE EVENT DATE: 202104
